FAERS Safety Report 10028475 (Version 1)
Quarter: 2014Q1

REPORT INFORMATION
  Report Type: Report from Study
  Country: US (occurrence: US)
  Receive Date: 20140321
  Receipt Date: 20140321
  Transmission Date: 20141002
  Serious: Yes (Other)
  Sender: FDA-Public Use
  Company Number: US-BRISTOL-MYERS SQUIBB COMPANY-20461778

PATIENT
  Age: 70 Year
  Sex: Male
  Weight: 93.4 kg

DRUGS (2)
  1. IPILIMUMAB [Suspect]
     Indication: MALIGNANT MELANOMA
     Dosage: IPILIMUMAB: 10 MG/KG IV OVER 90 MIN ON DAY I Q 12 WEEKS?LAST DOSE:15DEC11
     Route: 042
     Dates: start: 20110428
  2. GM-CSF [Suspect]
     Indication: MALIGNANT MELANOMA
     Dosage: LAST DOSE:18JAN2012?250 MCG/DAY SQ ON DAYS 1-14.
     Route: 058
     Dates: start: 20110428

REACTIONS (3)
  - Alanine aminotransferase increased [Recovered/Resolved]
  - Aspartate aminotransferase increased [Recovered/Resolved]
  - Lipase increased [Recovered/Resolved]
